FAERS Safety Report 18208460 (Version 2)
Quarter: 2022Q4

REPORT INFORMATION
  Report Type: Spontaneous
  Country: US (occurrence: US)
  Receive Date: 20200828
  Receipt Date: 20221123
  Transmission Date: 20230113
  Serious: Yes (Other)
  Sender: FDA-Public Use
  Company Number: US-PFIZER INC-2020332199

PATIENT
  Age: 55 Year
  Sex: Female
  Weight: 58.97 kg

DRUGS (1)
  1. LEVOTHYROXINE SODIUM [Suspect]
     Active Substance: LEVOTHYROXINE SODIUM
     Indication: Thyroid disorder
     Dosage: 104 UG, DAILY, (ON TWO DAYS SHE TAKES 100 MCG, THEN TUESDAY 112 MCG AND THEN ROTATES THE CYCLE), 112

REACTIONS (3)
  - Breast cancer [Recovered/Resolved]
  - Tri-iodothyronine decreased [Unknown]
  - Blood thyroid stimulating hormone abnormal [Unknown]

NARRATIVE: CASE EVENT DATE: 20071001
